FAERS Safety Report 8839250 (Version 1)
Quarter: 2012Q4

REPORT INFORMATION
  Report Type: Report from Study
  Country: CA (occurrence: CA)
  Receive Date: 20121015
  Receipt Date: 20121015
  Transmission Date: 20130627
  Serious: Yes (Hospitalization)
  Sender: FDA-Public Use
  Company Number: CA-JNJFOC-20121003189

PATIENT
  Age: 44 Year
  Sex: Male
  Weight: 99.79 kg

DRUGS (1)
  1. REMICADE [Suspect]
     Indication: PSORIASIS
     Dosage: 500 mg at induction doses 0, 2,4 weeks
     Route: 042
     Dates: start: 20120708, end: 20121003

REACTIONS (1)
  - Hospitalisation [Recovered/Resolved]
